FAERS Safety Report 10262573 (Version 1)
Quarter: 2014Q2

REPORT INFORMATION
  Report Type: Spontaneous
  Country: GB (occurrence: GB)
  Receive Date: 20140626
  Receipt Date: 20140626
  Transmission Date: 20141212
  Serious: Yes (Hospitalization)
  Sender: FDA-Public Use
  Company Number: GB-BAXTER-2014BAX033354

PATIENT
  Age: 2 Year
  Sex: Female

DRUGS (10)
  1. SODIUM CHLORIDE INTRAVENOUS INFUSION BP 0.9%W/V [Suspect]
     Indication: PARENTERAL NUTRITION
     Route: 065
     Dates: start: 201403
  2. GLUCOSE 5% INTRAVENOUS INFUSION BP [Suspect]
     Indication: PARENTERAL NUTRITION
     Route: 065
     Dates: start: 201403
  3. WATER FOR INJECTIONS BP [Suspect]
     Indication: PARENTERAL NUTRITION
     Route: 065
     Dates: start: 201403
  4. CALCIUM CHLORIDE [Suspect]
     Indication: PARENTERAL NUTRITION
     Route: 065
     Dates: start: 201403
  5. FERROUS CHLORIDE [Suspect]
     Indication: PARENTERAL NUTRITION
     Route: 065
     Dates: start: 201403
  6. MAGNESIUM SULPHATE [Suspect]
     Indication: PARENTERAL NUTRITION
     Route: 065
     Dates: start: 201403
  7. PEDITRACE [Suspect]
     Indication: PARENTERAL NUTRITION
     Route: 065
     Dates: start: 201403
  8. SODIUM GLYCEROPHOSPHATE [Suspect]
     Indication: PARENTERAL NUTRITION
     Route: 065
     Dates: start: 201403
  9. VAMINOLACT [Suspect]
     Indication: PARENTERAL NUTRITION
     Route: 065
     Dates: start: 201403
  10. POTASSIUM CHLORIDE [Suspect]
     Indication: PARENTERAL NUTRITION
     Route: 065
     Dates: start: 201403

REACTIONS (1)
  - Device related sepsis [Recovered/Resolved]
